FAERS Safety Report 24987611 (Version 2)
Quarter: 2025Q1

REPORT INFORMATION
  Report Type: Report from Study
  Country: CO (occurrence: CO)
  Receive Date: 20250219
  Receipt Date: 20250310
  Transmission Date: 20250409
  Serious: Yes (Death, Hospitalization, Other)
  Sender: SANOFI AVENTIS
  Company Number: CO-SA-2025SA049275

PATIENT
  Age: 59 Year
  Sex: Male

DRUGS (1)
  1. DUPILUMAB [Suspect]
     Active Substance: DUPILUMAB
     Indication: Dermatitis atopic
     Dosage: 300 MG, QOW
     Route: 058
     Dates: start: 20241210, end: 20250117

REACTIONS (2)
  - Ascites [Recovered/Resolved]
  - Death [Fatal]

NARRATIVE: CASE EVENT DATE: 20250122
